FAERS Safety Report 7162743-9 (Version None)
Quarter: 2010Q4

REPORT INFORMATION
  Report Type: 
  Country: None (occurrence: None)
  Receive Date: 20101215
  Receipt Date: 20091216
  Transmission Date: 20110411
  Serious: Yes (Hospitalization, Other)
  Sender: FDA-Public Use
  Company Number: IS-PFIZER INC-2009305251

PATIENT
  Age: 30 Year
  Sex: Male

DRUGS (1)
  1. LYRICA [Suspect]
     Indication: ANXIETY DISORDER
     Dosage: 1200 MG, 1X/DAY

REACTIONS (3)
  - DEPRESSED MOOD [None]
  - DRUG ABUSE [None]
  - SUICIDAL IDEATION [None]
